FAERS Safety Report 16839199 (Version 1)
Quarter: 2019Q4

REPORT INFORMATION
  Report Type: Spontaneous
  Country: US (occurrence: US)
  Receive Date: 20190920
  Receipt Date: 20190920
  Transmission Date: 20200122
  Serious: Yes (Life-Threatening, Hospitalization, Disabling, Other)
  Sender: FDA-Public Use
  Company Number: None

PATIENT
  Age: 54 Year
  Sex: Male
  Weight: 72 kg

DRUGS (5)
  1. OSELTAMIVIR PHOSPHATE 75MG CAPS  GENERIC FOR:TAMIFLU 75MG CAPS [Suspect]
     Active Substance: OSELTAMIVIR PHOSPHATE
     Indication: INFLUENZA
     Dosage: ?          QUANTITY:1 CAPSULE(S);?
     Route: 048
     Dates: start: 20190211, end: 20190213
  2. RISPERDAL [Concomitant]
     Active Substance: RISPERIDONE
  3. TRAZODONE [Concomitant]
     Active Substance: TRAZODONE HYDROCHLORIDE
  4. ESCITALOPRAM [Concomitant]
     Active Substance: ESCITALOPRAM OXALATE
  5. MIRTAZAPINE. [Concomitant]
     Active Substance: MIRTAZAPINE

REACTIONS (11)
  - Feeling abnormal [None]
  - Hallucination, auditory [None]
  - Social avoidant behaviour [None]
  - Exercise tolerance decreased [None]
  - Impaired work ability [None]
  - Tachyphrenia [None]
  - Rhabdomyolysis [None]
  - Cerebral disorder [None]
  - Insomnia [None]
  - Mania [None]
  - Disturbance in attention [None]

NARRATIVE: CASE EVENT DATE: 20190214
